FAERS Safety Report 6825121-5 (Version None)
Quarter: 2010Q3

REPORT INFORMATION
  Report Type: 
  Country: None (occurrence: None)
  Receive Date: 20100708
  Receipt Date: 20070130
  Transmission Date: 20110219
  Serious: No
  Sender: FDA-Public Use
  Company Number: US-PFIZER INC-2006148398

PATIENT
  Sex: Female
  Weight: 63.5 kg

DRUGS (1)
  1. CHANTIX [Suspect]
     Indication: SMOKING CESSATION THERAPY
     Dates: start: 20060101

REACTIONS (4)
  - ANXIETY [None]
  - MENSTRUATION DELAYED [None]
  - PREMENSTRUAL SYNDROME [None]
  - WEIGHT INCREASED [None]
